FAERS Safety Report 22254377 (Version 2)
Quarter: 2023Q2

REPORT INFORMATION
  Report Type: Spontaneous
  Country: AT (occurrence: AT)
  Receive Date: 20230426
  Receipt Date: 20230605
  Transmission Date: 20230722
  Serious: Yes (Other)
  Sender: FDA-Public Use
  Company Number: AT-BAYER-2023A056520

PATIENT
  Age: 56 Year
  Sex: Female

DRUGS (1)
  1. BETAFERON [Suspect]
     Active Substance: INTERFERON BETA-1B
     Dosage: UNK
     Dates: start: 200603, end: 202303

REACTIONS (1)
  - Breast cancer [None]

NARRATIVE: CASE EVENT DATE: 20230301
